FAERS Safety Report 5413902-4 (Version None)
Quarter: 2007Q3

REPORT INFORMATION
  Report Type: 
  Country: None (occurrence: None)
  Receive Date: 20070814
  Receipt Date: 20070801
  Transmission Date: 20080115
  Serious: Yes (Other)
  Sender: FDA-Public Use
  Company Number: CA-ELI_LILLY_AND_COMPANY-CA200708000506

PATIENT
  Sex: Male

DRUGS (12)
  1. FORTEO [Suspect]
     Indication: OSTEOPOROSIS
     Dosage: 20 UG, DAILY (1/D)
     Route: 058
     Dates: start: 20070612
  2. WARFARIN SODIUM [Concomitant]
     Dosage: 4 MG, UNK
     Dates: start: 19740101
  3. WARFARIN SODIUM [Concomitant]
     Dosage: 4.5 MG, UNK
     Dates: start: 19740101
  4. FLUDROCORTISONE ACETATE [Concomitant]
     Dosage: 0.1 MG, DAILY (1/D)
  5. HYDROCORTISONE [Concomitant]
  6. PREVACID [Concomitant]
     Dosage: 30 MG, DAILY (1/D)
  7. VITAMIN CAP [Concomitant]
  8. FOLIC ACID [Concomitant]
  9. VITAMIN D [Concomitant]
     Dosage: 1200 MG, DAILY (1/D)
  10. DOCUSATE SODIUM [Concomitant]
     Dosage: 100 MG, UNK
  11. FLOMAX [Concomitant]
     Dosage: 0.4 MG, EACH EVENING
  12. TYLENOL /SCH/ [Concomitant]
     Dosage: UNK, AS NEEDED

REACTIONS (2)
  - TRANSIENT ISCHAEMIC ATTACK [None]
  - VISION BLURRED [None]
